FAERS Safety Report 6564999-X (Version None)
Quarter: 2010Q1

REPORT INFORMATION
  Report Type: 
  Country: None (occurrence: None)
  Receive Date: 20100201
  Receipt Date: 20100127
  Transmission Date: 20100710
  Serious: Yes (Hospitalization)
  Sender: FDA-Public Use
  Company Number: IT-PFIZER INC-2010012087

PATIENT
  Age: 45 Year
  Sex: Male

DRUGS (3)
  1. MINIDIAB [Suspect]
     Indication: OFF LABEL USE
     Dosage: 2 UNITS, AS NEEDED
     Route: 048
     Dates: start: 20080101, end: 20081124
  2. HUMALOG [Suspect]
     Indication: OFF LABEL USE
     Dosage: 7 IU, LOWER THAN 100, AS NEEDED
     Route: 058
     Dates: start: 20080101, end: 20081126
  3. HUMULIN R [Suspect]
     Indication: OFF LABEL USE
     Dosage: 8 IU, LOWER THAN 100, AS NEEDED
     Route: 058
     Dates: start: 20080101, end: 20081126

REACTIONS (4)
  - ASTHENIA [None]
  - CONFUSIONAL STATE [None]
  - HYPOGLYCAEMIA [None]
  - RHABDOMYOLYSIS [None]
